FAERS Safety Report 16362369 (Version 1)
Quarter: 2019Q3

REPORT INFORMATION
  Report Type: Spontaneous
  Country: AU (occurrence: AU)
  Receive Date: 20190526
  Receipt Date: 20190526
  Transmission Date: 20191004
  Serious: Yes (Other)
  Sender: FDA-Public Use
  Company Number: None

PATIENT
  Age: 7 Year
  Sex: Female
  Weight: 24 kg

DRUGS (3)
  1. SINGULAIR [Suspect]
     Active Substance: MONTELUKAST SODIUM
     Indication: ASTHMA
     Dosage: ?          QUANTITY:1 TABLET(S);?
     Route: 048
     Dates: start: 20120101, end: 20171001
  2. ASMOL [Concomitant]
  3. FLIXATIDE [Concomitant]

REACTIONS (3)
  - Aggression [None]
  - Anger [None]
  - Suicidal ideation [None]

NARRATIVE: CASE EVENT DATE: 20170101
